FAERS Safety Report 26180932 (Version 1)
Quarter: 2025Q4

REPORT INFORMATION
  Report Type: Spontaneous
  Country: US (occurrence: US)
  Receive Date: 20251221
  Receipt Date: 20251221
  Transmission Date: 20260118
  Serious: No
  Sender: ALNYLAM PHARMACEUTICALS
  Company Number: US-ALNYLAM PHARMACEUTICALS, INC.-ALN-2025-007727

PATIENT

DRUGS (2)
  1. GIVLAARI [Suspect]
     Active Substance: GIVOSIRAN SODIUM
     Indication: Product used for unknown indication
     Dosage: UNK
     Route: 065
  2. HEMIN [Concomitant]
     Active Substance: HEMIN
     Indication: Product used for unknown indication
     Dosage: UNK, EVERY 2 WEEKS
     Route: 065

REACTIONS (7)
  - Injection site cellulitis [Unknown]
  - Central venous catheterisation [Unknown]
  - Influenza [Unknown]
  - Headache [Unknown]
  - Nausea [Unknown]
  - Injection site bruising [Unknown]
  - Fatigue [Unknown]
